FAERS Safety Report 6233500-2 (Version None)
Quarter: 2009Q2

REPORT INFORMATION
  Report Type: 
  Country: None (occurrence: None)
  Receive Date: 20090617
  Receipt Date: 20090608
  Transmission Date: 20091009
  Serious: Yes (Life-Threatening)
  Sender: FDA-Public Use
  Company Number: NL-PURDUE-USA-2009-0038604

PATIENT

DRUGS (1)
  1. NON-PMN MORPHINE SULFATE [Suspect]
     Indication: DRUG USE FOR UNKNOWN INDICATION
     Route: 042

REACTIONS (2)
  - MUSCLE RIGIDITY [None]
  - NEONATAL RESPIRATORY FAILURE [None]
